FAERS Safety Report 19072029 (Version 1)
Quarter: 2021Q1

REPORT INFORMATION
  Report Type: Spontaneous
  Country: US (occurrence: US)
  Receive Date: 20210330
  Receipt Date: 20210330
  Transmission Date: 20210420
  Serious: No
  Sender: FDA-Public Use
  Company Number: US-SA-2021SA103615

PATIENT
  Sex: Male

DRUGS (1)
  1. DUPIXENT [Suspect]
     Active Substance: DUPILUMAB
     Indication: NASAL POLYPS
     Route: 050

REACTIONS (9)
  - Hyposmia [Unknown]
  - Eye irritation [Unknown]
  - Ear discomfort [Unknown]
  - Headache [Unknown]
  - Eye pain [Unknown]
  - Discomfort [Unknown]
  - Ear pain [Unknown]
  - Anosmia [Unknown]
  - Facial pain [Unknown]
